FAERS Safety Report 7414303-X (Version None)
Quarter: 2011Q2

REPORT INFORMATION
  Report Type: 
  Country: None (occurrence: None)
  Receive Date: 20110411
  Receipt Date: 20110411
  Transmission Date: 20111010
  Serious: Yes (Other)
  Sender: FDA-Public Use
  Company Number: None

PATIENT
  Age: 36 Year
  Sex: Female
  Weight: 86.1834 kg

DRUGS (2)
  1. ZOLOFT [Suspect]
     Indication: ANXIETY
     Dosage: 50MG 1 A DAY PO
     Route: 048
     Dates: start: 20080120, end: 20110410
  2. ZOLOFT [Suspect]
     Indication: DEPRESSION
     Dosage: 50MG 1 A DAY PO
     Route: 048
     Dates: start: 20080120, end: 20110410

REACTIONS (12)
  - HYPOAESTHESIA FACIAL [None]
  - DIZZINESS [None]
  - HEADACHE [None]
  - IRRITABILITY [None]
  - MYALGIA [None]
  - NAUSEA [None]
  - ANGER [None]
  - PRODUCT SUBSTITUTION ISSUE [None]
  - DRUG INEFFECTIVE [None]
  - LIP DRY [None]
  - HYPOAESTHESIA [None]
  - DRY MOUTH [None]
